FAERS Safety Report 25245381 (Version 1)
Quarter: 2025Q2

REPORT INFORMATION
  Report Type: Spontaneous
  Country: CN (occurrence: CN)
  Receive Date: 20250428
  Receipt Date: 20250428
  Transmission Date: 20250716
  Serious: Yes (Other)
  Sender: NOVARTIS
  Company Number: CN-002147023-NVSC2025CN066879

PATIENT
  Age: 61 Year
  Sex: Male
  Weight: 70 kg

DRUGS (1)
  1. TOBRAMYCIN [Suspect]
     Active Substance: TOBRAMYCIN
     Indication: Vitreous haemorrhage
     Dosage: 1 DRP, QID
     Route: 047
     Dates: start: 20250417, end: 20250421

REACTIONS (4)
  - Retinal haemorrhage [Unknown]
  - Conjunctival hyperaemia [Unknown]
  - Coagulation factor V level decreased [Unknown]
  - Off label use [Unknown]

NARRATIVE: CASE EVENT DATE: 20250418
